FAERS Safety Report 10102879 (Version 1)
Quarter: 2014Q2

REPORT INFORMATION
  Report Type: Spontaneous
  Country: US (occurrence: US)
  Receive Date: 20140424
  Receipt Date: 20140424
  Transmission Date: 20141212
  Serious: No
  Sender: FDA-Public Use
  Company Number: US-BRISTOL-MYERS SQUIBB COMPANY-19967926

PATIENT
  Sex: Male

DRUGS (1)
  1. ELIQUIS [Suspect]
     Dosage: THE PATIENT HAS BEEN ON ELIQUIS FOR 1 MONTH

REACTIONS (1)
  - Rash pruritic [Unknown]
